FAERS Safety Report 4334081-0 (Version None)
Quarter: 2004Q2

REPORT INFORMATION
  Report Type: 
  Country: None (occurrence: None)
  Receive Date: 20040402
  Receipt Date: 20040322
  Transmission Date: 20050107
  Serious: Yes (Disabling)
  Sender: FDA-Public Use
  Company Number: 2004019970

PATIENT
  Age: 55 Year
  Sex: Female

DRUGS (4)
  1. FELDENE [Suspect]
     Indication: ARTHRALGIA
     Dosage: 20 MG (DAILY), RECTAL
     Route: 054
     Dates: start: 20010101, end: 20040322
  2. ACETAMINOPHEN [Suspect]
     Indication: ARTHRALGIA
     Dosage: 3000 MG (DAILY)
     Dates: start: 20010101, end: 20040322
  3. FLUOXETINE HCL [Concomitant]
  4. BROMAZEPAM (BROMAZEPAM) [Concomitant]

REACTIONS (2)
  - IMPAIRED DRIVING ABILITY [None]
  - VISUAL DISTURBANCE [None]
